FAERS Safety Report 11536388 (Version 1)
Quarter: 2015Q3

REPORT INFORMATION
  Report Type: Spontaneous
  Country: US (occurrence: US)
  Receive Date: 20150903
  Receipt Date: 20150903
  Transmission Date: 20151125
  Serious: No
  Sender: FDA-Public Use
  Company Number: US-ELI_LILLY_AND_COMPANY-US201106006834

PATIENT
  Age: 74 Year
  Sex: Female

DRUGS (3)
  1. LANTUS [Concomitant]
     Active Substance: INSULIN GLARGINE
     Dosage: UNK
  2. HUMALOG [Suspect]
     Active Substance: INSULIN LISPRO
     Indication: DIABETES MELLITUS
     Dosage: UNK, PRN
     Dates: start: 1996
  3. HUMALOG [Suspect]
     Active Substance: INSULIN LISPRO
     Indication: DIABETES MELLITUS

REACTIONS (9)
  - Incorrect dose administered [Unknown]
  - Blood glucose decreased [Unknown]
  - Blood glucose increased [Unknown]
  - Fall [Not Recovered/Not Resolved]
  - Ligament rupture [Not Recovered/Not Resolved]
  - Incorrect dose administered [Unknown]
  - Exposure to toxic agent [Recovering/Resolving]
  - Injection site bruising [Unknown]
  - Infection [Recovering/Resolving]

NARRATIVE: CASE EVENT DATE: 201105
